FAERS Safety Report 20565743 (Version 6)
Quarter: 2022Q3

REPORT INFORMATION
  Report Type: Report from Study
  Country: US (occurrence: US)
  Receive Date: 20220308
  Receipt Date: 20220629
  Transmission Date: 20221027
  Serious: No
  Sender: FDA-Public Use
  Company Number: US-NOVARTISTESTPH-NVSC2022US053591

PATIENT
  Sex: Female

DRUGS (2)
  1. COSENTYX [Suspect]
     Active Substance: SECUKINUMAB
     Indication: Psoriasis
     Dosage: 300 MG, QMO (ONCE A WEEK FOR 5 WEEKS, THEN ONCE)
     Route: 058
     Dates: start: 202202
  2. COSENTYX [Suspect]
     Active Substance: SECUKINUMAB
     Dosage: 300 MG (ONCE A WEEK FOR 5 WEEK THEN ONCE EVERY 4 WEEKS)
     Route: 058

REACTIONS (7)
  - Pyrexia [Unknown]
  - Abdominal discomfort [Unknown]
  - Constipation [Unknown]
  - Nausea [Unknown]
  - Oropharyngeal pain [Unknown]
  - Psoriasis [Unknown]
  - Diarrhoea [Unknown]
